FAERS Safety Report 24557830 (Version 2)
Quarter: 2025Q2

REPORT INFORMATION
  Report Type: Spontaneous
  Country: US (occurrence: US)
  Receive Date: 20241028
  Receipt Date: 20250513
  Transmission Date: 20250717
  Serious: Yes (Disabling, Other)
  Sender: REGENERON
  Company Number: US-REGENERON PHARMACEUTICALS, INC.-2024-144359

PATIENT
  Sex: Male

DRUGS (6)
  1. EYLEA [Suspect]
     Active Substance: AFLIBERCEPT
     Indication: Retinal vein occlusion
     Dosage: 2 MG, GIVEN 1 MONTH APART, INTO THE RIGHT EYE; STRENGTH: 1.250 M (0.08 ML), FORMULATION: (PFS) (GERR
     Dates: start: 20240723, end: 20240723
  2. EYLEA [Suspect]
     Active Substance: AFLIBERCEPT
     Indication: Macular oedema
     Dosage: 2 MG, GIVEN 1 MONTH APART, INTO THE RIGHT EYE; STRENGTH: 1.250 M (0.08 ML), FORMULATION: (PFS) (GERR
     Dates: start: 20240820, end: 20240820
  3. EYLEA [Suspect]
     Active Substance: AFLIBERCEPT
     Dates: start: 20240917, end: 20240917
  4. ATORVASTATIN [Concomitant]
     Active Substance: ATORVASTATIN
     Indication: Product used for unknown indication
  5. CELECOXIB [Concomitant]
     Active Substance: CELECOXIB
     Indication: Product used for unknown indication
  6. TERAZOSIN [Concomitant]
     Active Substance: TERAZOSIN HYDROCHLORIDE
     Indication: Product used for unknown indication

REACTIONS (4)
  - Blindness unilateral [Not Recovered/Not Resolved]
  - Retinal degeneration [Recovered/Resolved]
  - Retinal occlusive vasculitis [Recovered/Resolved]
  - Wrong technique in product usage process [Unknown]

NARRATIVE: CASE EVENT DATE: 20240101
